FAERS Safety Report 18035017 (Version 2)
Quarter: 2020Q3

REPORT INFORMATION
  Report Type: Spontaneous
  Country: BR (occurrence: BR)
  Receive Date: 20200717
  Receipt Date: 20200720
  Transmission Date: 20201103
  Serious: Yes (Other)
  Sender: FDA-Public Use
  Company Number: BR-AMGEN-BRASP2019132180

PATIENT
  Age: 74 Year
  Sex: Female
  Weight: 52 kg

DRUGS (2)
  1. ENBREL [Suspect]
     Active Substance: ETANERCEPT
     Indication: RHEUMATOID ARTHRITIS
     Dosage: 50 MG, ONCE WEEKLY
     Route: 065
     Dates: start: 201801
  2. METOTREXATE [Concomitant]
     Active Substance: METHOTREXATE SODIUM
     Dosage: UNK
     Route: 065
     Dates: start: 2017

REACTIONS (5)
  - Wrong technique in device usage process [Recovered/Resolved]
  - Erythema [Recovered/Resolved]
  - Drug dose omission by device [Not Recovered/Not Resolved]
  - Injection site infection [Unknown]
  - Device issue [Recovered/Resolved]

NARRATIVE: CASE EVENT DATE: 2019
